FAERS Safety Report 8155326-5 (Version None)
Quarter: 2012Q1

REPORT INFORMATION
  Report Type: 
  Country: None (occurrence: None)
  Receive Date: 20120222
  Receipt Date: 20120214
  Transmission Date: 20120608
  Serious: No
  Sender: FDA-Public Use
  Company Number: US-BIOGENIDEC-2012BI005909

PATIENT
  Age: 57 Year
  Sex: Female

DRUGS (1)
  1. TYSABRI [Suspect]
     Indication: MULTIPLE SCLEROSIS
     Route: 042
     Dates: start: 20110304

REACTIONS (7)
  - URINARY TRACT INFECTION [None]
  - FATIGUE [None]
  - PAIN [None]
  - URINARY INCONTINENCE [None]
  - BLADDER DISORDER [None]
  - STRESS [None]
  - DERMATITIS [None]
